FAERS Safety Report 4902031-1 (Version None)
Quarter: 2006Q1

REPORT INFORMATION
  Report Type: 
  Country: None (occurrence: None)
  Receive Date: 20060202
  Receipt Date: 20060125
  Transmission Date: 20060701
  Serious: Yes (Disabling)
  Sender: FDA-Public Use
  Company Number: 236530K05USA

PATIENT
  Age: 41 Year
  Sex: Female

DRUGS (1)
  1. REBIF [Suspect]
     Indication: MULTIPLE SCLEROSIS
     Dosage: 44 MCG, 3 IN 1 WEEKS, SUBCUTANEOUS
     Route: 058
     Dates: start: 20040412

REACTIONS (5)
  - BREAST MICROCALCIFICATION [None]
  - HEPATIC CYST [None]
  - HYPOACUSIS [None]
  - NEOPLASM [None]
  - THYROID NEOPLASM [None]
